FAERS Safety Report 4300785-9 (Version None)
Quarter: 2004Q1

REPORT INFORMATION
  Report Type: 
  Country: None (occurrence: None)
  Receive Date: 20040218
  Receipt Date: 20040203
  Transmission Date: 20041129
  Serious: Yes (Hospitalization, Other)
  Sender: FDA-Public Use
  Company Number: 2004-DE-00700UP

PATIENT
  Age: 62 Year
  Sex: Female

DRUGS (2)
  1. MIRAPEXIN (PRAMIPEXOLE DIHYDROCHLORIDE) (TA) [Suspect]
     Indication: PARKINSON'S DISEASE
     Dosage: 180 MCG (NR)
     Route: 048
     Dates: start: 20040102
  2. CITALOPRAM [Suspect]
     Dosage: 20 MG (NR)
     Route: 048
     Dates: start: 20030808

REACTIONS (2)
  - DRUG INTERACTION [None]
  - HALLUCINATION, VISUAL [None]
